FAERS Safety Report 8471461-6 (Version None)
Quarter: 2012Q2

REPORT INFORMATION
  Report Type: 
  Country: None (occurrence: None)
  Receive Date: 20120627
  Receipt Date: 20120625
  Transmission Date: 20120825
  Serious: Yes (Hospitalization)
  Sender: FDA-Public Use
  Company Number: PHHY2012CO054702

PATIENT
  Sex: Female

DRUGS (2)
  1. VALPROIC ACID [Concomitant]
  2. AFINITOR [Suspect]
     Indication: TUBEROUS SCLEROSIS
     Dosage: 2.5 MG, UNK
     Route: 048
     Dates: start: 20120607, end: 20120622

REACTIONS (5)
  - CONVULSION [None]
  - SLEEP APNOEA SYNDROME [None]
  - VOMITING [None]
  - ABDOMINAL PAIN UPPER [None]
  - COUGH [None]
